FAERS Safety Report 8851670 (Version 1)
Quarter: 2012Q4

REPORT INFORMATION
  Report Type: 
  Country: GB (occurrence: GB)
  Receive Date: 20121022
  Receipt Date: 20121022
  Transmission Date: 20130627
  Serious: Yes (Other)
  Sender: FDA-Public Use
  Company Number: GB-RANBAXY-2012R1-60962

PATIENT
  Age: 57 Year
  Sex: Female
  Weight: 50.8 kg

DRUGS (7)
  1. LAMOTRIGINE [Suspect]
     Indication: MOOD SWINGS
     Dosage: UNK
     Route: 048
     Dates: start: 20120610
  2. LAMOTRIGINE [Suspect]
     Dosage: UNK
     Route: 048
     Dates: end: 20120617
  3. TOPIRAMATE [Suspect]
     Indication: MOOD SWINGS
     Dosage: UNK
     Route: 048
     Dates: start: 20120722
  4. TOPIRAMATE [Suspect]
     Dosage: UNK
     Route: 048
     Dates: end: 20120817
  5. DULOXETINE [Concomitant]
     Indication: PRODUCT USED FOR UNKNOWN INDICATION
     Dosage: UNK
     Route: 065
  6. LEVOTHYROXINE [Concomitant]
     Indication: PRODUCT USED FOR UNKNOWN INDICATION
     Dosage: UNK
     Route: 065
  7. ZOPICLONE [Concomitant]
     Indication: PRODUCT USED FOR UNKNOWN INDICATION
     Dosage: UNK
     Route: 065

REACTIONS (4)
  - Mouth ulceration [Not Recovered/Not Resolved]
  - Medication error [Unknown]
  - Oral mucosal exfoliation [Not Recovered/Not Resolved]
  - Poikilocytosis [Recovered/Resolved]
